FAERS Safety Report 15167514 (Version 3)
Quarter: 2018Q3

REPORT INFORMATION
  Report Type: Spontaneous
  Country: US (occurrence: US)
  Receive Date: 20180719
  Receipt Date: 20180919
  Transmission Date: 20181010
  Serious: Yes (Other)
  Sender: FDA-Public Use
  Company Number: US-ACTELION-A-NJ2018-175583

PATIENT
  Age: 77 Year
  Sex: Female
  Weight: 63.49 kg

DRUGS (5)
  1. UPTRAVI [Suspect]
     Active Substance: SELEXIPAG
     Indication: PULMONARY ARTERIAL HYPERTENSION
     Dosage: 1600 MCG, BID
     Route: 048
  2. PLAVIX [Suspect]
     Active Substance: CLOPIDOGREL BISULFATE
     Indication: PRODUCT USED FOR UNKNOWN INDICATION
     Route: 065
  3. ADCIRCA [Concomitant]
     Active Substance: TADALAFIL
  4. COUMADIN [Concomitant]
     Active Substance: WARFARIN SODIUM
  5. EFFIENT [Concomitant]
     Active Substance: PRASUGREL HYDROCHLORIDE

REACTIONS (14)
  - Pericardial effusion [Unknown]
  - Stent placement [Unknown]
  - Adverse drug reaction [Unknown]
  - Headache [Unknown]
  - Malaise [Unknown]
  - Retching [Unknown]
  - Pain in extremity [Unknown]
  - Nausea [Unknown]
  - Atrial fibrillation [Unknown]
  - Fatigue [Unknown]
  - Cardiac pacemaker insertion [Unknown]
  - Unevaluable event [Unknown]
  - Condition aggravated [Unknown]
  - Intracardiac pressure increased [Unknown]

NARRATIVE: CASE EVENT DATE: 2018
